FAERS Safety Report 10611372 (Version 3)
Quarter: 2015Q1

REPORT INFORMATION
  Report Type: Spontaneous
  Country: US (occurrence: US)
  Receive Date: 20141126
  Receipt Date: 20150326
  Transmission Date: 20150720
  Serious: No
  Sender: FDA-Public Use
  Company Number: US-PFIZER INC-2014323224

PATIENT
  Age: 82 Year
  Sex: Female

DRUGS (10)
  1. HYDROCODONE BITARTRATE. [Suspect]
     Active Substance: HYDROCODONE BITARTRATE
     Dosage: UNK
  2. INDOCIN [Suspect]
     Active Substance: INDOMETHACIN\INDOMETHACIN SODIUM
     Indication: ARTHRITIS
     Dosage: UNK
  3. MORPHINE SULFATE. [Suspect]
     Active Substance: MORPHINE SULFATE
     Indication: KNEE ARTHROPLASTY
     Dosage: UNK
     Dates: start: 2005
  4. CODEINE [Suspect]
     Active Substance: CODEINE
     Indication: KNEE ARTHROPLASTY
     Dosage: UNK
     Dates: start: 2004
  5. CODEINE [Suspect]
     Active Substance: CODEINE
     Dosage: UNK
     Dates: start: 2005
  6. PLAQUENIL [Suspect]
     Active Substance: HYDROXYCHLOROQUINE SULFATE
     Indication: ARTHRITIS
     Dosage: UNK
  7. FLUCONAZOLE. [Suspect]
     Active Substance: FLUCONAZOLE
     Dosage: UNK
  8. ASPIRIN. [Suspect]
     Active Substance: ASPIRIN
     Indication: ARTHRITIS
     Dosage: UNK
     Dates: start: 2005
  9. IODINE [Suspect]
     Active Substance: IODINE
     Dosage: UNK
     Dates: start: 1984
  10. ERYTHROCIN [Suspect]
     Active Substance: ERYTHROMYCIN LACTOBIONATE
     Indication: ARTHRITIS
     Dosage: UNK
     Dates: start: 2005

REACTIONS (1)
  - Drug hypersensitivity [Unknown]
